FAERS Safety Report 4879585-7 (Version None)
Quarter: 2006Q1

REPORT INFORMATION
  Report Type: 
  Country: None (occurrence: None)
  Receive Date: 20060111
  Receipt Date: 20060105
  Transmission Date: 20060701
  Serious: Yes (Other)
  Sender: FDA-Public Use
  Company Number: CL-2006-000299

PATIENT
  Age: 31 Year
  Sex: Female
  Weight: 82 kg

DRUGS (3)
  1. YASMIN [Suspect]
     Indication: ORAL CONTRACEPTION
     Dosage: 1 TAB(S), 1X/DAY, ORAL
     Route: 048
     Dates: start: 20030901, end: 20051201
  2. LEVOTHYROXINE SODIUM [Concomitant]
  3. METFORMIN HCL [Concomitant]

REACTIONS (2)
  - ABORTION MISSED [None]
  - PREGNANCY ON ORAL CONTRACEPTIVE [None]
